FAERS Safety Report 13589680 (Version 1)
Quarter: 2017Q2

REPORT INFORMATION
  Report Type: Spontaneous
  Country: US (occurrence: US)
  Receive Date: 20170527
  Receipt Date: 20170527
  Transmission Date: 20170830
  Serious: No
  Sender: FDA-Public Use
  Company Number: None

PATIENT
  Age: 61 Year
  Sex: Female
  Weight: 61.65 kg

DRUGS (25)
  1. LEVOFLOXACIN 750 MG TABLET [Suspect]
     Active Substance: LEVOFLOXACIN
     Indication: PNEUMONIA
     Dosage: ?          QUANTITY:7 TABLET(S);?
     Route: 048
     Dates: start: 20170429, end: 20170502
  2. CLONAZAPAM [Concomitant]
     Active Substance: CLONAZEPAM
  3. PREMARIN [Concomitant]
     Active Substance: ESTROGENS, CONJUGATED
  4. ATENOLOL. [Concomitant]
     Active Substance: ATENOLOL
  5. SYSTANE (HYPROMELLOSE 2910 (4000 MPA.S)) [Concomitant]
     Active Substance: HYPROMELLOSE 2910 (4000 MPA.S)
  6. CENTRUM [Concomitant]
     Active Substance: VITAMINS
  7. LEVOFLOXACIN 750 MG TABLET [Suspect]
     Active Substance: LEVOFLOXACIN
     Indication: BRONCHITIS
     Dosage: ?          QUANTITY:7 TABLET(S);?
     Route: 048
     Dates: start: 20170429, end: 20170502
  8. CLARINEX [Concomitant]
     Active Substance: DESLORATADINE
  9. BELBUCA [Concomitant]
     Active Substance: BUPRENORPHINE HYDROCHLORIDE
  10. BALANCECITRACAL+D [Concomitant]
  11. MAXALT [Concomitant]
     Active Substance: RIZATRIPTAN BENZOATE
  12. TOPIRIMATE [Concomitant]
  13. NASACORTAQ [Concomitant]
  14. PROBIOTIC [Concomitant]
     Active Substance: PROBIOTICS NOS
  15. FLEXERIL [Concomitant]
     Active Substance: CYCLOBENZAPRINE HYDROCHLORIDE
  16. CRESTOR [Concomitant]
     Active Substance: ROSUVASTATIN CALCIUM
  17. CARAFATE [Concomitant]
     Active Substance: SUCRALFATE
  18. VIT D SOFTGEL [Concomitant]
  19. SINGULAIR [Concomitant]
     Active Substance: MONTELUKAST SODIUM
  20. LEXAPRO [Concomitant]
     Active Substance: ESCITALOPRAM OXALATE
  21. VITAMIN B12 [Concomitant]
     Active Substance: CYANOCOBALAMIN
  22. DIFLUCAN [Concomitant]
     Active Substance: FLUCONAZOLE
  23. DEXILANT [Concomitant]
     Active Substance: DEXLANSOPRAZOLE
  24. ARMOUR THYROID [Concomitant]
     Active Substance: THYROID, PORCINE
  25. FLUCONAZOL [Concomitant]
     Active Substance: FLUCONAZOLE

REACTIONS (10)
  - Urticaria [None]
  - Arthralgia [None]
  - Tendon pain [None]
  - Headache [None]
  - Swelling face [None]
  - Gait disturbance [None]
  - Peripheral swelling [None]
  - Pain in extremity [None]
  - Blister [None]
  - Fatigue [None]

NARRATIVE: CASE EVENT DATE: 20170429
